FAERS Safety Report 17833176 (Version 1)
Quarter: 2020Q2

REPORT INFORMATION
  Report Type: Spontaneous
  Country: US (occurrence: US)
  Receive Date: 20200527
  Receipt Date: 20200527
  Transmission Date: 20200714
  Serious: Yes (Hospitalization)
  Sender: FDA-Public Use
  Company Number: None

PATIENT
  Age: 38 Year
  Sex: Male
  Weight: 71.67 kg

DRUGS (5)
  1. RISPERDAL [Suspect]
     Active Substance: RISPERIDONE
  2. ZYPREXA ZYDIS [Suspect]
     Active Substance: OLANZAPINE
  3. LITHIUM. [Suspect]
     Active Substance: LITHIUM
  4. SEROQUEL [Suspect]
     Active Substance: QUETIAPINE FUMARATE
  5. ABILIFY [Suspect]
     Active Substance: ARIPIPRAZOLE
     Indication: BIPOLAR DISORDER
     Dosage: ?          QUANTITY:2 PILLS;OTHER FREQUENCY:BEDTIME;?
     Route: 048
     Dates: start: 2002

REACTIONS (2)
  - Cardiovascular disorder [None]
  - Adverse drug reaction [None]

NARRATIVE: CASE EVENT DATE: 20200518
